FAERS Safety Report 12799960 (Version 2)
Quarter: 2016Q4

REPORT INFORMATION
  Report Type: Report from Study
  Country: ES (occurrence: ES)
  Receive Date: 20160930
  Receipt Date: 20161007
  Transmission Date: 20170207
  Serious: Yes (Hospitalization)
  Sender: FDA-Public Use
  Company Number: ES-BRISTOL-MYERS SQUIBB COMPANY-BMS-2016-037762

PATIENT
  Age: 56 Year
  Sex: Male
  Weight: 89 kg

DRUGS (6)
  1. NIVOLUMAB [Suspect]
     Active Substance: NIVOLUMAB
     Dosage: 267 MG, UNK
     Route: 065
     Dates: start: 20150601, end: 20150601
  2. NIVOLUMAB [Suspect]
     Active Substance: NIVOLUMAB
     Dosage: 246 MG, UNK
     Route: 065
     Dates: start: 20150615, end: 20150615
  3. NIVOLUMAB [Suspect]
     Active Substance: NIVOLUMAB
     Indication: NON-SMALL CELL LUNG CANCER
     Dosage: 267 MG, UNK
     Route: 065
     Dates: start: 20150518, end: 20150518
  4. NIVOLUMAB [Suspect]
     Active Substance: NIVOLUMAB
     Dosage: 246 MG, UNK
     Route: 065
     Dates: start: 20150629, end: 20150629
  5. FUROSEMIDE. [Concomitant]
     Active Substance: FUROSEMIDE
     Indication: PRODUCT USED FOR UNKNOWN INDICATION
     Dosage: 40 MG, UNK
     Route: 048
  6. BISOPROLOL [Concomitant]
     Active Substance: BISOPROLOL
     Indication: PRODUCT USED FOR UNKNOWN INDICATION
     Dosage: 10 MG, UNK
     Route: 048
     Dates: start: 20150705

REACTIONS (1)
  - Pleural effusion [Recovered/Resolved]

NARRATIVE: CASE EVENT DATE: 20150705
